FAERS Safety Report 26110450 (Version 1)
Quarter: 2025Q4

REPORT INFORMATION
  Report Type: Spontaneous
  Country: US (occurrence: US)
  Receive Date: 20251202
  Receipt Date: 20251202
  Transmission Date: 20260118
  Serious: Yes (Life-Threatening, Hospitalization, Other)
  Sender: MSN LABORATORIES PRIVATE LIMITED
  Company Number: US-MSNLABS-2025MSNLIT03530

PATIENT

DRUGS (3)
  1. RIOCIGUAT [Suspect]
     Active Substance: RIOCIGUAT
     Indication: Pulmonary arterial hypertension
     Route: 065
  2. RESVERATROL [Suspect]
     Active Substance: RESVERATROL
     Dosage: TOTAL 1000 MG RESVERATROL POWDER DERIVED FROM POLYGONUM CUSPIDATUM ROOT
     Route: 065
  3. OREGANO [Suspect]
     Active Substance: OREGANO
     Dosage: TOTAL 61.6 MG EXTRACT OF MEDITERRANEAN/WILD HARVESTED OREGANO
     Route: 065

REACTIONS (10)
  - Hypotension [Recovered/Resolved]
  - Acute kidney injury [Recovering/Resolving]
  - Syncope [Recovered/Resolved]
  - Respiratory failure [Recovered/Resolved]
  - Azotaemia [Recovering/Resolving]
  - Atrial fibrillation [Recovered/Resolved]
  - Encephalopathy [Recovered/Resolved]
  - Drug interaction [Unknown]
  - Bundle branch block right [Recovered/Resolved]
  - Ventricular extrasystoles [Recovered/Resolved]
